FAERS Safety Report 17566087 (Version 4)
Quarter: 2020Q2

REPORT INFORMATION
  Report Type: Spontaneous
  Country: JP (occurrence: JP)
  Receive Date: 20200320
  Receipt Date: 20200428
  Transmission Date: 20200713
  Serious: Yes (Other)
  Sender: FDA-Public Use
  Company Number: JP-PFIZER INC-2020117814

PATIENT
  Age: 60 Year
  Sex: Female
  Weight: 41 kg

DRUGS (5)
  1. DOCETAXEL. [Suspect]
     Active Substance: DOCETAXEL
     Indication: BREAST CANCER FEMALE
     Dosage: 95 MG, 1X/DAY
     Route: 041
     Dates: start: 20190404, end: 20190718
  2. PERTUZUMAB. [Concomitant]
     Active Substance: PERTUZUMAB
     Indication: BREAST CANCER FEMALE
     Dosage: UNK
     Dates: start: 201904
  3. RIFAMPICIN [Concomitant]
     Active Substance: RIFAMPIN
     Indication: ATYPICAL MYCOBACTERIAL INFECTION
     Dosage: UNK
     Dates: start: 201903
  4. TRASTUZUMAB. [Concomitant]
     Active Substance: TRASTUZUMAB
     Indication: BREAST CANCER FEMALE
     Dosage: UNK
     Dates: start: 201904
  5. CLARITHROMYCIN. [Interacting]
     Active Substance: CLARITHROMYCIN
     Indication: ATYPICAL MYCOBACTERIAL INFECTION
     Dosage: 400 MG, 2X/DAY
     Route: 048
     Dates: start: 20190328, end: 20190411

REACTIONS (2)
  - Drug interaction [Recovering/Resolving]
  - Drug-induced liver injury [Recovering/Resolving]

NARRATIVE: CASE EVENT DATE: 20190411
